FAERS Safety Report 23799764 (Version 1)
Quarter: 2024Q2

REPORT INFORMATION
  Report Type: Spontaneous
  Country: US (occurrence: US)
  Receive Date: 20240430
  Receipt Date: 20240430
  Transmission Date: 20240716
  Serious: Yes (Death, Other)
  Sender: FDA-Public Use
  Company Number: US-AMGEN-USASP2024082961

PATIENT

DRUGS (2)
  1. RITUXIMAB [Suspect]
     Active Substance: RITUXIMAB
     Indication: Cytopenia
     Dosage: UNK
     Route: 065
  2. FILGRASTIM [Suspect]
     Active Substance: FILGRASTIM
     Indication: Cytopenia
     Dosage: UNK
     Route: 065

REACTIONS (11)
  - Death [Fatal]
  - Myeloproliferative neoplasm [Fatal]
  - Myelodysplastic syndrome with single lineage dysplasia [Fatal]
  - Neoplasm malignant [Fatal]
  - Infection [Fatal]
  - Multimorbidity [Fatal]
  - Myelodysplastic syndrome transformation [Unknown]
  - Chronic myelomonocytic leukaemia [Unknown]
  - Transformation to acute myeloid leukaemia [Unknown]
  - Drug ineffective for unapproved indication [Unknown]
  - Off label use [Unknown]
